FAERS Safety Report 5084263-8 (Version None)
Quarter: 2006Q3

REPORT INFORMATION
  Report Type: 
  Country: None (occurrence: None)
  Receive Date: 20060821
  Receipt Date: 20060712
  Transmission Date: 20061208
  Serious: Yes (Other)
  Sender: FDA-Public Use
  Company Number: PHEH2006US08945

PATIENT
  Age: 29 Year
  Sex: Female
  Weight: 100.5 kg

DRUGS (4)
  1. EXJADE [Suspect]
     Dosage: 2000 MG, QD
     Route: 048
     Dates: start: 20060601, end: 20060725
  2. PEN-VEE K [Concomitant]
     Dosage: 250 MG, BID
     Route: 048
     Dates: start: 19760816
  3. FOLIC ACID [Concomitant]
     Dosage: 1 MG, QD
     Dates: start: 19760816
  4. HYDROXYUREA [Concomitant]
     Indication: CEREBROVASCULAR ACCIDENT
     Dosage: 1500 MG, QD
     Route: 048
     Dates: start: 19991128

REACTIONS (2)
  - CONSTIPATION [None]
  - FAECALOMA [None]
